FAERS Safety Report 5993479-5 (Version None)
Quarter: 2008Q4

REPORT INFORMATION
  Report Type: 
  Country: None (occurrence: None)
  Receive Date: 20081212
  Receipt Date: 20081207
  Transmission Date: 20090506
  Serious: Yes (Death, Life-Threatening, Hospitalization)
  Sender: FDA-Public Use
  Company Number: JP-BAYER-200812898BYL

PATIENT
  Age: 57 Year
  Sex: Male
  Weight: 64 kg

DRUGS (16)
  1. NEXAVAR [Suspect]
     Indication: RENAL CELL CARCINOMA STAGE IV
     Dosage: TOTAL DAILY DOSE: 400 MG  UNIT DOSE: 200 MG
     Route: 048
     Dates: start: 20071019
  2. NEXAVAR [Suspect]
     Dosage: TOTAL DAILY DOSE: 800 MG  UNIT DOSE: 200 MG
     Route: 048
     Dates: start: 20080516, end: 20080707
  3. NEXAVAR [Suspect]
     Dosage: TOTAL DAILY DOSE: 800 MG  UNIT DOSE: 200 MG
     Route: 048
     Dates: start: 20080905, end: 20081031
  4. OXYCONTIN [Concomitant]
     Route: 048
     Dates: start: 20080527
  5. HYPEN [Concomitant]
     Route: 048
     Dates: start: 20080527
  6. TOLEDOMIN [Concomitant]
     Route: 048
     Dates: start: 20080527
  7. MYSLEE [Concomitant]
     Route: 048
     Dates: start: 20080527
  8. ROHYPNOL [Concomitant]
     Route: 048
     Dates: start: 20080527
  9. OXINORM [Concomitant]
     Route: 048
     Dates: start: 20080527
  10. SUMIFERON [Concomitant]
     Route: 058
     Dates: start: 20080527
  11. INTERFERON ALFA [Concomitant]
     Indication: CHEMOTHERAPY
     Dates: start: 20071017, end: 20080905
  12. ZOMETA [Concomitant]
     Route: 065
     Dates: start: 20071011, end: 20080901
  13. IL-6 [Concomitant]
     Route: 065
     Dates: start: 20080707
  14. MAPROTILINE HYDROCHLORIDE [Concomitant]
     Route: 065
     Dates: start: 20081001, end: 20081001
  15. MAPROTILINE HYDROCHLORIDE [Concomitant]
     Route: 065
     Dates: start: 20080930, end: 20080930
  16. MAPROTILINE HYDROCHLORIDE [Concomitant]
     Route: 065
     Dates: start: 20081008, end: 20081009

REACTIONS (4)
  - DYSPNOEA [None]
  - INTERSTITIAL LUNG DISEASE [None]
  - RESPIRATORY FAILURE [None]
  - TUMOUR HAEMORRHAGE [None]
